FAERS Safety Report 8314201-3 (Version None)
Quarter: 2012Q2

REPORT INFORMATION
  Report Type: 
  Country: None (occurrence: None)
  Receive Date: 20120426
  Receipt Date: 20120425
  Transmission Date: 20120825
  Serious: Yes (Death, Other)
  Sender: FDA-Public Use
  Company Number: PHFR2012GB001964

PATIENT
  Sex: Female

DRUGS (10)
  1. NITROFURANTOIN [Concomitant]
     Indication: URINARY TRACT INFECTION
     Dosage: 400 MG, QD
     Route: 048
  2. CLOZARIL [Suspect]
     Dosage: 200 MG, DAILY
     Route: 048
  3. DOTHIEPIN HYDROCHLORIDE [Concomitant]
     Indication: DEPRESSION
     Dosage: 75 MG, QD
     Route: 048
  4. PARACETAMOL [Concomitant]
     Indication: ARTHRITIS
     Dosage: 4 G, QD
     Route: 048
  5. CODEINE PHOSPHATE [Concomitant]
     Indication: ARTHRITIS
     Dosage: 60 MG, QD
     Route: 048
  6. SIMVASTATIN [Concomitant]
     Indication: BLOOD CHOLESTEROL
     Dosage: 40 MG, QD
     Route: 048
  7. CLOZARIL [Suspect]
     Indication: SCHIZOPHRENIA
     Dosage: UNK UKN, UNK
     Route: 048
     Dates: start: 20030628
  8. CLOZARIL [Suspect]
     Dosage: 400 MG, QD
  9. ASPIRIN [Concomitant]
     Indication: ANTIPLATELET THERAPY
     Dosage: 75 MG, QD
     Route: 048
  10. LANSOPRAZOLE [Concomitant]
     Indication: GASTRITIS
     Dosage: 30 MG, QD
     Route: 048

REACTIONS (5)
  - GENERAL PHYSICAL HEALTH DETERIORATION [None]
  - MALAISE [None]
  - SOMNOLENCE [None]
  - DEATH [None]
  - ANTIPSYCHOTIC DRUG LEVEL INCREASED [None]
